FAERS Safety Report 16634939 (Version 1)
Quarter: 2019Q3

REPORT INFORMATION
  Report Type: Spontaneous
  Country: US (occurrence: US)
  Receive Date: 20190726
  Receipt Date: 20190726
  Transmission Date: 20191004
  Serious: No
  Sender: FDA-Public Use
  Company Number: US-CURIUM-201900327

PATIENT
  Age: 4 Year
  Sex: Male
  Weight: 14.8 kg

DRUGS (6)
  1. ULTRA-TECHNEKOW V4 [Suspect]
     Active Substance: TECHNETIUM TC-99M SODIUM PERTECHNETATE
     Indication: RADIOISOTOPE SCAN
     Route: 051
     Dates: start: 20190619, end: 20190619
  2. DOCUSATE [Concomitant]
     Active Substance: DOCUSATE
     Indication: PRODUCT USED FOR UNKNOWN INDICATION
     Route: 065
  3. POLYETHYLENE GLYCOL [Concomitant]
     Active Substance: POLYETHYLENE GLYCOLS
     Indication: PRODUCT USED FOR UNKNOWN INDICATION
     Route: 065
  4. BACITRACIN. [Concomitant]
     Active Substance: BACITRACIN
     Indication: PRODUCT USED FOR UNKNOWN INDICATION
     Route: 065
  5. AMOXICILLIN. [Concomitant]
     Active Substance: AMOXICILLIN
     Indication: PRODUCT USED FOR UNKNOWN INDICATION
     Route: 065
  6. TECHNESCAN MAG3 [Suspect]
     Active Substance: TECHNETIUM TC-99M TIATIDE
     Indication: RADIOISOTOPE SCAN
     Route: 051
     Dates: start: 20190619, end: 20190619

REACTIONS (1)
  - Radioisotope scan abnormal [Recovered/Resolved]

NARRATIVE: CASE EVENT DATE: 20190619
